FAERS Safety Report 12891416 (Version 2)
Quarter: 2017Q1

REPORT INFORMATION
  Report Type: Spontaneous
  Country: IT (occurrence: IT)
  Receive Date: 20161028
  Receipt Date: 20170310
  Transmission Date: 20170428
  Serious: Yes (Other)
  Sender: FDA-Public Use
  Company Number: IT-SUN PHARMACEUTICAL INDUSTRIES LTD-2016R1-126851

PATIENT
  Age: 15 Year
  Sex: Female

DRUGS (1)
  1. ACETYLSALICYLIC ACID [Suspect]
     Active Substance: ASPIRIN
     Indication: PRODUCT USED FOR UNKNOWN INDICATION
     Dosage: THERAPEUTIC DOSAGE
     Route: 065

REACTIONS (2)
  - Aspirin-exacerbated respiratory disease [Recovered/Resolved]
  - Urticaria [Recovered/Resolved]
